FAERS Safety Report 8538217-7 (Version None)
Quarter: 2012Q3

REPORT INFORMATION
  Report Type: 
  Country: None (occurrence: None)
  Receive Date: 20120726
  Receipt Date: 20120716
  Transmission Date: 20120928
  Serious: Yes (Hospitalization, Other)
  Sender: FDA-Public Use
  Company Number: US-BIOGENIDEC-2007BI020504

PATIENT
  Age: 46 Year
  Sex: Female
  Weight: 58 kg

DRUGS (3)
  1. AVONEX [Suspect]
     Route: 030
     Dates: start: 20071020
  2. AVONEX [Suspect]
     Route: 030
     Dates: start: 20030101, end: 20060531
  3. AVONEX [Suspect]
     Indication: MULTIPLE SCLEROSIS
     Route: 030
     Dates: start: 19961001, end: 20030101

REACTIONS (8)
  - ANTINUCLEAR ANTIBODY POSITIVE [None]
  - WHITE BLOOD CELL COUNT INCREASED [None]
  - CHONDROPATHY [None]
  - AMNESIA [None]
  - OSTEOARTHRITIS [None]
  - SYSTEMIC LUPUS ERYTHEMATOSUS [None]
  - ALOPECIA AREATA [None]
  - ARTHRALGIA [None]
